FAERS Safety Report 13239065 (Version 1)
Quarter: 2017Q1

REPORT INFORMATION
  Report Type: Spontaneous
  Country: US (occurrence: US)
  Receive Date: 20170216
  Receipt Date: 20170216
  Transmission Date: 20170428
  Serious: Yes (Hospitalization)
  Sender: FDA-Public Use
  Company Number: None

PATIENT
  Age: 29 Year
  Sex: Female
  Weight: 82 kg

DRUGS (1)
  1. NOLVADEX [Suspect]
     Active Substance: TAMOXIFEN CITRATE
     Dates: end: 20160730

REACTIONS (8)
  - Haemorrhagic anaemia [None]
  - Abdominal pain [None]
  - Malignant neoplasm progression [None]
  - Hypotension [None]
  - Back pain [None]
  - Pelvic pain [None]
  - Vaginal haemorrhage [None]
  - Ovarian cancer [None]

NARRATIVE: CASE EVENT DATE: 20160730
